FAERS Safety Report 8572514-4 (Version None)
Quarter: 2012Q3

REPORT INFORMATION
  Report Type: 
  Country: None (occurrence: None)
  Receive Date: 20120806
  Receipt Date: 20120723
  Transmission Date: 20120928
  Serious: Yes (Other)
  Sender: FDA-Public Use
  Company Number: US-ROCHE-1091335

PATIENT
  Sex: Female

DRUGS (3)
  1. HERCEPTIN [Suspect]
     Indication: BREAST CANCER METASTATIC
  2. CYTOXAN [Suspect]
     Indication: BREAST CANCER METASTATIC
  3. ADRIAMYCIN PFS [Suspect]
     Indication: BREAST CANCER METASTATIC

REACTIONS (2)
  - BREAST CANCER [None]
  - ASTHENIA [None]
